FAERS Safety Report 10809641 (Version 1)
Quarter: 2015Q1

REPORT INFORMATION
  Report Type: Report from Study
  Country: US (occurrence: US)
  Receive Date: 20150217
  Receipt Date: 20150217
  Transmission Date: 20150721
  Serious: No
  Sender: FDA-Public Use
  Company Number: US-ABBVIE-14K-163-1207982-00

PATIENT
  Age: 24 Year
  Sex: Female

DRUGS (8)
  1. HUMIRA [Suspect]
     Active Substance: ADALIMUMAB
     Dates: start: 20140301
  2. PREDNISONE. [Suspect]
     Active Substance: PREDNISONE
     Indication: COLITIS ULCERATIVE
     Dates: start: 20140125
  3. PREDNISONE. [Suspect]
     Active Substance: PREDNISONE
     Dates: start: 20140205
  4. HUMIRA [Suspect]
     Active Substance: ADALIMUMAB
     Indication: COLITIS ULCERATIVE
     Dates: start: 20140125, end: 20140125
  5. LIALDA [Concomitant]
     Active Substance: MESALAMINE
     Indication: COLITIS ULCERATIVE
  6. HUMIRA [Suspect]
     Active Substance: ADALIMUMAB
     Dates: start: 20140208, end: 20140208
  7. PREDNISONE. [Suspect]
     Active Substance: PREDNISONE
     Dates: start: 20140215
  8. HUMIRA [Suspect]
     Active Substance: ADALIMUMAB
     Dates: start: 20140220

REACTIONS (3)
  - Drug ineffective [Unknown]
  - Colitis ulcerative [Not Recovered/Not Resolved]
  - Drug ineffective [Unknown]

NARRATIVE: CASE EVENT DATE: 20140125
